FAERS Safety Report 10389143 (Version 1)
Quarter: 2014Q3

REPORT INFORMATION
  Report Type: Spontaneous
  Country: JP (occurrence: JP)
  Receive Date: 20140817
  Receipt Date: 20140817
  Transmission Date: 20150326
  Serious: Yes (Other)
  Sender: FDA-Public Use
  Company Number: PHHY2012JP134969

PATIENT

DRUGS (1)
  1. GLIVEC [Suspect]
     Active Substance: IMATINIB MESYLATE
     Indication: PULMONARY HYPERTENSION
     Dosage: UNK

REACTIONS (4)
  - Fibrosis [Unknown]
  - Drug ineffective [Recovered/Resolved]
  - Angiopathy [Unknown]
  - Pancytopenia [Unknown]
